FAERS Safety Report 19029979 (Version 3)
Quarter: 2021Q3

REPORT INFORMATION
  Report Type: Report from Study
  Country: US (occurrence: US)
  Receive Date: 20210318
  Receipt Date: 20210826
  Transmission Date: 20211014
  Serious: No
  Sender: FDA-Public Use
  Company Number: NVSC2021US056876

PATIENT
  Age: 68 Year
  Sex: Female

DRUGS (1)
  1. KESIMPTA [Suspect]
     Active Substance: OFATUMUMAB
     Indication: MULTIPLE SCLEROSIS
     Dosage: 20MG/.4ML, QMO
     Route: 058

REACTIONS (1)
  - Infection [Unknown]

NARRATIVE: CASE EVENT DATE: 20210201
